FAERS Safety Report 5906398-7 (Version None)
Quarter: 2008Q4

REPORT INFORMATION
  Report Type: 
  Country: None (occurrence: None)
  Receive Date: 20081002
  Receipt Date: 20080922
  Transmission Date: 20090506
  Serious: Yes (Hospitalization)
  Sender: FDA-Public Use
  Company Number: TW-SANOFI-SYNTHELABO-A01200811662

PATIENT
  Age: 59 Year
  Sex: Female
  Weight: 54 kg

DRUGS (11)
  1. LABETALOL HCL [Concomitant]
     Indication: HYPERTENSION
     Dosage: 100 MG
     Route: 065
  2. CALCIUM CARBONATE [Concomitant]
     Indication: RENAL FAILURE CHRONIC
     Dosage: 1500 MG
     Route: 065
  3. ALPRAZOLAM [Concomitant]
     Indication: INSOMNIA
     Dosage: 0.5 MG
     Route: 065
  4. SILYMARIN [Concomitant]
     Indication: CHRONIC HEPATITIS
     Dosage: 105 MG
     Route: 065
  5. GLIPIZIDE [Concomitant]
     Indication: DIABETES MELLITUS
     Dosage: 10 MG
     Route: 065
  6. LOVASTATIN [Interacting]
     Indication: HYPERCHOLESTEROLAEMIA
     Dosage: 20 MG
     Route: 048
  7. LOVASTATIN [Interacting]
     Indication: DYSLIPIDAEMIA
     Dosage: 20 MG
     Route: 048
  8. LOVASTATIN [Interacting]
     Dosage: 40 MG
     Route: 048
  9. LOVASTATIN [Interacting]
     Dosage: 40 MG
     Route: 048
  10. DANAZOL [Suspect]
     Indication: THROMBOCYTOPENIA
     Dosage: 600 MG
     Route: 048
  11. DANAZOL [Interacting]
     Dosage: 600 MG
     Route: 048

REACTIONS (4)
  - DRUG INTERACTION [None]
  - HEPATITIS [None]
  - PANCREATITIS [None]
  - RHABDOMYOLYSIS [None]
